FAERS Safety Report 5050578-2 (Version None)
Quarter: 2006Q3

REPORT INFORMATION
  Report Type: 
  Country: None (occurrence: None)
  Receive Date: 20060713
  Receipt Date: 20060704
  Transmission Date: 20061208
  Serious: Yes (Hospitalization)
  Sender: FDA-Public Use
  Company Number: FR-GLAXOSMITHKLINE-B0429711A

PATIENT
  Age: 47 Year
  Sex: Female

DRUGS (4)
  1. REQUIP [Suspect]
     Route: 048
     Dates: start: 20050208
  2. SINEMET [Suspect]
     Route: 048
     Dates: start: 20050426, end: 20060530
  3. SEROPRAM [Suspect]
     Dosage: 1UNIT PER DAY
     Route: 048
     Dates: start: 20040115
  4. STILNOX [Suspect]
     Dosage: 10MG PER DAY
     Route: 048
     Dates: start: 20040115

REACTIONS (2)
  - NEUTROPENIA [None]
  - WHITE BLOOD CELL COUNT DECREASED [None]
